FAERS Safety Report 17905156 (Version 1)
Quarter: 2020Q2

REPORT INFORMATION
  Report Type: Spontaneous
  Country: US (occurrence: US)
  Receive Date: 20200617
  Receipt Date: 20200617
  Transmission Date: 20200714
  Serious: No
  Sender: FDA-Public Use
  Company Number: US-BAYER-2020-121299

PATIENT
  Sex: Male

DRUGS (2)
  1. ANTIHISTAMIN [Concomitant]
     Active Substance: ANTIHISTAMINES NOS
  2. CLARITIN [Suspect]
     Active Substance: LORATADINE
     Indication: SEASONAL ALLERGY

REACTIONS (1)
  - Drug ineffective [Unknown]
